FAERS Safety Report 8414589 (Version 2)
Quarter: 2014Q1

REPORT INFORMATION
  Report Type: Spontaneous
  Country: US (occurrence: US)
  Receive Date: 20120218
  Receipt Date: 20140202
  Transmission Date: 20141002
  Serious: No
  Sender: FDA-Public Use
  Company Number: US-ALLERGAN-1105766US

PATIENT
  Age: 62 Year
  Sex: Female

DRUGS (11)
  1. BOTOX [Suspect]
     Indication: DYSTONIA
     Dosage: 15 UNITS, SINGLE
     Route: 030
     Dates: start: 20110406, end: 20110406
  2. BOTOX [Suspect]
     Dosage: 60 UNITS, SINGLE
     Route: 030
     Dates: start: 20130218, end: 20130218
  3. BOTOX [Suspect]
     Dosage: 40 UNITS, SINGLE
     Dates: start: 201211, end: 201211
  4. BACLOFEN [Concomitant]
     Indication: DYSTONIA
     Dosage: 5 MG, QHS
     Route: 048
  5. BACLOFEN [Concomitant]
     Dosage: 10 MG, QHS
     Route: 048
  6. VALIUM [Concomitant]
     Indication: DYSTONIA
     Dosage: 4 MG, QD
     Route: 048
  7. AMITRIPTYLINE [Concomitant]
     Indication: ANXIETY
     Dosage: 75 MG, QD
     Route: 048
  8. AMITRIPTYLINE [Concomitant]
     Indication: DEPRESSION
  9. VOLTAREN GEL [Concomitant]
     Dosage: UNK
     Route: 061
  10. NEXIUM [Concomitant]
     Indication: GASTROOESOPHAGEAL REFLUX DISEASE
     Dosage: 20 MG, QD
     Route: 048
  11. VITAMINS [Suspect]
     Indication: SUPPLEMENTATION THERAPY
     Dosage: UNK
     Route: 048

REACTIONS (6)
  - Rhinorrhoea [Unknown]
  - Off label use [Unknown]
  - Diarrhoea [Unknown]
  - Headache [Unknown]
  - Muscular weakness [Unknown]
  - Hypoaesthesia [Unknown]
